FAERS Safety Report 9079867 (Version 2)
Quarter: 2013Q1

REPORT INFORMATION
  Report Type: Spontaneous
  Country: DE (occurrence: DE)
  Receive Date: 20130215
  Receipt Date: 20130305
  Transmission Date: 20140127
  Serious: Yes (Death)
  Sender: FDA-Public Use
  Company Number: DE-GLAXOSMITHKLINE-D0078737A

PATIENT
  Sex: Female

DRUGS (2)
  1. TYVERB [Suspect]
     Indication: BREAST CANCER
     Route: 048
     Dates: start: 2008
  2. ARIMIDEX [Concomitant]
     Indication: BREAST CANCER
     Route: 065
     Dates: start: 200810, end: 2008

REACTIONS (1)
  - Death [Fatal]
